FAERS Safety Report 11540425 (Version 1)
Quarter: 2015Q3

REPORT INFORMATION
  Report Type: Spontaneous
  Country: US (occurrence: US)
  Receive Date: 20150923
  Receipt Date: 20150923
  Transmission Date: 20151125
  Serious: No
  Sender: FDA-Public Use
  Company Number: US-BEH-2014045975

PATIENT
  Age: 34 Year
  Sex: Female
  Weight: 59 kg

DRUGS (15)
  1. ACETAMINOPHEN. [Concomitant]
     Active Substance: ACETAMINOPHEN
  2. METROGEL [Concomitant]
     Active Substance: METRONIDAZOLE
  3. SODIUM CHLORIDE. [Concomitant]
     Active Substance: SODIUM CHLORIDE
  4. CELEBREX [Concomitant]
     Active Substance: CELECOXIB
  5. EPIPEN [Concomitant]
     Active Substance: EPINEPHRINE
  6. PRIVIGEN [Suspect]
     Active Substance: HUMAN IMMUNOGLOBULIN G
     Indication: SELECTIVE IGG SUBCLASS DEFICIENCY
     Dosage: FREQUENCY EVERY FOR 4 WEEKS
     Route: 042
  7. FOLIC ACID. [Concomitant]
     Active Substance: FOLIC ACID
  8. SYNTHROID [Concomitant]
     Active Substance: LEVOTHYROXINE SODIUM
  9. NORMAL SALINE [Concomitant]
     Active Substance: SODIUM CHLORIDE
  10. PRIVIGEN [Suspect]
     Active Substance: HUMAN IMMUNOGLOBULIN G
     Indication: IMMUNODEFICIENCY
     Dosage: FREQUENCY: EVERY 4 WEEKS
     Route: 042
  11. FLONASE [Concomitant]
     Active Substance: FLUTICASONE PROPIONATE
  12. DIPHENHYDAMINE [Concomitant]
  13. TOPIRAMATE. [Concomitant]
     Active Substance: TOPIRAMATE
  14. ALL OTHER THERAPEUTIC PRODUCTS [Concomitant]
     Active Substance: UNSPECIFIED INGREDIENT
  15. AZELASTINE [Concomitant]
     Active Substance: AZELASTINE

REACTIONS (2)
  - Upper respiratory tract infection [Unknown]
  - Pharyngitis streptococcal [Unknown]

NARRATIVE: CASE EVENT DATE: 20141009
